FAERS Safety Report 15974624 (Version 1)
Quarter: 2019Q1

REPORT INFORMATION
  Report Type: Spontaneous
  Country: US (occurrence: US)
  Receive Date: 20190218
  Receipt Date: 20190218
  Transmission Date: 20190418
  Serious: No
  Sender: FDA-Public Use
  Company Number: US-TEVA-2018-US-895023

PATIENT
  Age: 3 Decade
  Sex: Female

DRUGS (4)
  1. OXYTOCIN. [Suspect]
     Active Substance: OXYTOCIN
     Route: 050
  2. PHENYLEPHRINE [Suspect]
     Active Substance: PHENYLEPHRINE\PHENYLEPHRINE HYDROCHLORIDE
     Route: 042
  3. METOPROLOL. [Suspect]
     Active Substance: METOPROLOL
     Indication: VENTRICULAR TACHYCARDIA
     Route: 065
  4. ACETYLSALICYLIC-ACID [Suspect]
     Active Substance: ASPIRIN
     Indication: POLYCYTHAEMIA
     Route: 065

REACTIONS (1)
  - Maternal exposure during pregnancy [Unknown]
